FAERS Safety Report 9760223 (Version 1)
Quarter: 2013Q4

REPORT INFORMATION
  Report Type: Spontaneous
  Country: US (occurrence: US)
  Receive Date: 20131216
  Receipt Date: 20131216
  Transmission Date: 20140711
  Serious: Yes (Other)
  Sender: FDA-Public Use
  Company Number: US-BAYER-2013-151693

PATIENT
  Age: 46 Year
  Sex: Male

DRUGS (2)
  1. MAGNEVIST [Suspect]
     Indication: NUCLEAR MAGNETIC RESONANCE IMAGING BRAIN
     Dosage: 18 ML, ONCE
     Dates: start: 20131206, end: 20131206
  2. MAGNEVIST [Suspect]
     Indication: CEREBROVASCULAR ACCIDENT

REACTIONS (2)
  - Urticaria [Unknown]
  - Dyspnoea [Unknown]
